FAERS Safety Report 12051067 (Version 1)
Quarter: 2016Q1

REPORT INFORMATION
  Report Type: Spontaneous
  Country: US (occurrence: None)
  Receive Date: 20160208
  Receipt Date: 20160208
  Transmission Date: 20160526
  Serious: Yes (Hospitalization)
  Sender: FDA-Public Use
  Company Number: None

PATIENT
  Age: 57 Year
  Sex: Female

DRUGS (1)
  1. VICTOZA [Suspect]
     Active Substance: LIRAGLUTIDE
     Dosage: APPROX 2/3 MONTHS 1 DOSE DAILY ONCE DAILY GIVEN INTO/UNDER THE SKIN
     Route: 058

REACTIONS (5)
  - Unevaluable event [None]
  - Sepsis [None]
  - Renal failure [None]
  - Pancreatitis [None]
  - Cardiac failure congestive [None]
